FAERS Safety Report 4275530-6 (Version None)
Quarter: 2004Q1

REPORT INFORMATION
  Report Type: 
  Country: None (occurrence: None)
  Receive Date: 20040121
  Receipt Date: 20040112
  Transmission Date: 20041129
  Serious: Yes (Death, Hospitalization)
  Sender: FDA-Public Use
  Company Number: GB-GLAXOSMITHKLINE-B0319782A

PATIENT
  Sex: Female

DRUGS (7)
  1. VENTOLIN [Suspect]
     Indication: ASTHMA
  2. CAPOTEN [Suspect]
     Route: 048
     Dates: start: 19950901, end: 20000901
  3. SPIRONOLACTONE [Concomitant]
     Route: 065
  4. FRUSEMIDE [Concomitant]
     Route: 065
  5. FRUMIL [Concomitant]
     Route: 065
  6. BUMETANIDE [Concomitant]
     Route: 065
  7. BECOTIDE [Concomitant]
     Indication: ASTHMA

REACTIONS (2)
  - ASTHMA [None]
  - LEFT VENTRICULAR FAILURE [None]
